FAERS Safety Report 4346516-8 (Version None)
Quarter: 2004Q2

REPORT INFORMATION
  Report Type: 
  Country: None (occurrence: None)
  Receive Date: 20040426
  Receipt Date: 20031106
  Transmission Date: 20050107
  Serious: No
  Sender: FDA-Public Use
  Company Number: US-BRISTOL-MYERS SQUIBB COMPANY-12429775

PATIENT
  Age: 60 Year
  Sex: Female
  Weight: 104 kg

DRUGS (9)
  1. CARBOPLATIN [Suspect]
     Indication: ENDOMETRIAL CANCER METASTATIC
     Route: 042
     Dates: start: 20031103, end: 20031103
  2. TAXOL [Concomitant]
  3. DECADRON [Concomitant]
     Indication: PREMEDICATION
     Route: 042
  4. TAGAMET [Concomitant]
     Indication: PREMEDICATION
     Route: 042
  5. BENADRYL [Concomitant]
     Indication: PREMEDICATION
     Route: 042
  6. SOLU-MEDROL [Concomitant]
     Indication: PREMEDICATION
     Route: 042
  7. ATENOLOL [Concomitant]
  8. SYNTHROID [Concomitant]
  9. ZANTAC [Concomitant]

REACTIONS (7)
  - BLOOD PRESSURE INCREASED [None]
  - DIARRHOEA [None]
  - ERYTHEMA [None]
  - FLUSHING [None]
  - HEART RATE INCREASED [None]
  - NAUSEA [None]
  - PRURITUS [None]
